FAERS Safety Report 23844468 (Version 1)
Quarter: 2024Q2

REPORT INFORMATION
  Report Type: Report from Study
  Country: US (occurrence: None)
  Receive Date: 20240510
  Receipt Date: 20240510
  Transmission Date: 20240715
  Serious: Yes (Other)
  Sender: FDA-Public Use
  Company Number: 2024A106017

PATIENT
  Sex: Female
  Weight: 49.9 kg

DRUGS (1)
  1. CALQUENCE [Suspect]
     Active Substance: ACALABRUTINIB
     Indication: Remission not achieved
     Route: 048

REACTIONS (1)
  - Amyotrophic lateral sclerosis [Not Recovered/Not Resolved]
